FAERS Safety Report 9248062 (Version 1)
Quarter: 2013Q1

REPORT INFORMATION
  Report Type: Spontaneous
  Country: US (occurrence: None)
  Receive Date: 20130305
  Receipt Date: 20130305
  Transmission Date: 20140127
  Serious: Yes (Hospitalization)
  Sender: FDA-Public Use
  Company Number: 163-21880-12060727

PATIENT
  Age: 82 Year
  Sex: Male

DRUGS (6)
  1. REVLIMID [Suspect]
     Indication: PLASMA CELL MYELOMA
     Route: 048
     Dates: start: 201104
  2. AMIODARONE (AMIODARONE) [Concomitant]
  3. ASA (ACETYLSALICYLIC ACID) [Concomitant]
  4. PLAVIX (CLOPIDOGREL SULFATE) [Concomitant]
  5. ENALAPRIL [Concomitant]
  6. METOPROLOL (METOPROLOL) [Concomitant]

REACTIONS (3)
  - Atrial fibrillation [None]
  - Pneumonia [None]
  - Fatigue [None]
